FAERS Safety Report 12249438 (Version 2)
Quarter: 2016Q2

REPORT INFORMATION
  Report Type: Spontaneous
  Country: US (occurrence: US)
  Receive Date: 20160408
  Receipt Date: 20160413
  Transmission Date: 20160815
  Serious: Yes (Hospitalization, Other)
  Sender: FDA-Public Use
  Company Number: US-PFIZER INC-2016078726

PATIENT
  Age: 71 Year
  Sex: Male

DRUGS (6)
  1. LASIX [Concomitant]
     Active Substance: FUROSEMIDE
     Dosage: 20 MG, UNK
     Dates: start: 201511
  2. ELIQUIS [Suspect]
     Active Substance: APIXABAN
     Indication: INTERNATIONAL NORMALISED RATIO
     Dosage: 20 MG, 1X/DAY
     Dates: start: 201512, end: 20160116
  3. METOPROLOL SUCCINATE. [Concomitant]
     Active Substance: METOPROLOL SUCCINATE
     Dosage: 45 MG, UNK
     Dates: start: 201602
  4. BENICAR [Suspect]
     Active Substance: OLMESARTAN MEDOXOMIL
     Dosage: 40 MG, UNK
     Dates: start: 201511
  5. SPIROLACTONE [Suspect]
     Active Substance: SPIRONOLACTONE
     Dosage: 8 MG, UNK
     Dates: start: 201511
  6. LIPITOR [Suspect]
     Active Substance: ATORVASTATIN CALCIUM
     Dosage: 10 MG, UNK

REACTIONS (1)
  - Cardiac disorder [Recovered/Resolved]

NARRATIVE: CASE EVENT DATE: 20160116
